FAERS Safety Report 24839176 (Version 2)
Quarter: 2025Q1

REPORT INFORMATION
  Report Type: Report from Study
  Country: US (occurrence: US)
  Receive Date: 20250114
  Receipt Date: 20250124
  Transmission Date: 20250408
  Serious: Yes (Death)
  Sender: ABBVIE
  Company Number: US-ABBVIE-6084202

PATIENT
  Age: 67 Year
  Sex: Male
  Weight: 77.11 kg

DRUGS (1)
  1. HUMIRA [Suspect]
     Active Substance: ADALIMUMAB
     Indication: Crohn^s disease
     Route: 058
     Dates: start: 201311

REACTIONS (1)
  - Rectal cancer metastatic [Fatal]

NARRATIVE: CASE EVENT DATE: 20200921
